FAERS Safety Report 13206787 (Version 1)
Quarter: 2017Q1

REPORT INFORMATION
  Report Type: Spontaneous
  Country: US (occurrence: US)
  Receive Date: 20170208
  Receipt Date: 20170208
  Transmission Date: 20170428
  Serious: No
  Sender: FDA-Public Use
  Company Number: US-AMGEN-USASP2016139582

PATIENT
  Age: 41 Year
  Sex: Female

DRUGS (25)
  1. CYTOXAN [Concomitant]
     Active Substance: CYCLOPHOSPHAMIDE
     Indication: OESTROGEN RECEPTOR ASSAY POSITIVE
  2. TAMONE [Concomitant]
     Indication: PROGESTERONE RECEPTOR ASSAY POSITIVE
  3. TAMONE [Concomitant]
     Indication: HUMAN EPIDERMAL GROWTH FACTOR RECEPTOR NEGATIVE
  4. NOLVADEX [Concomitant]
     Active Substance: TAMOXIFEN CITRATE
     Indication: HUMAN EPIDERMAL GROWTH FACTOR RECEPTOR NEGATIVE
  5. TAMOFEN [Concomitant]
     Active Substance: TAMOXIFEN CITRATE
     Indication: OESTROGEN RECEPTOR ASSAY POSITIVE
  6. TAMOFEN [Concomitant]
     Active Substance: TAMOXIFEN CITRATE
     Indication: HUMAN EPIDERMAL GROWTH FACTOR RECEPTOR NEGATIVE
  7. NEULASTA [Suspect]
     Active Substance: PEGFILGRASTIM
     Indication: PRODUCT USED FOR UNKNOWN INDICATION
     Dosage: UNK
     Route: 065
  8. NOLVADEX [Concomitant]
     Active Substance: TAMOXIFEN CITRATE
     Indication: OESTROGEN RECEPTOR ASSAY POSITIVE
  9. APO-TAMOX [Concomitant]
     Active Substance: TAMOXIFEN
     Indication: OESTROGEN RECEPTOR ASSAY POSITIVE
  10. APO-TAMOX [Concomitant]
     Active Substance: TAMOXIFEN
     Indication: HUMAN EPIDERMAL GROWTH FACTOR RECEPTOR NEGATIVE
  11. TAMONE [Concomitant]
     Indication: OESTROGEN RECEPTOR ASSAY POSITIVE
  12. TAXOTERE [Concomitant]
     Active Substance: DOCETAXEL
     Indication: HUMAN EPIDERMAL GROWTH FACTOR RECEPTOR NEGATIVE
  13. CYTOXAN [Concomitant]
     Active Substance: CYCLOPHOSPHAMIDE
     Indication: PROGESTERONE RECEPTOR ASSAY POSITIVE
  14. TAXOTERE [Concomitant]
     Active Substance: DOCETAXEL
     Indication: INVASIVE DUCTAL BREAST CARCINOMA
     Dosage: UNK
     Dates: start: 20160907
  15. TAXOTERE [Concomitant]
     Active Substance: DOCETAXEL
     Indication: OESTROGEN RECEPTOR ASSAY POSITIVE
  16. NOLVADEX [Concomitant]
     Active Substance: TAMOXIFEN CITRATE
     Indication: INVASIVE DUCTAL BREAST CARCINOMA
     Dosage: UNK
     Dates: start: 2016
  17. NOLVADEX [Concomitant]
     Active Substance: TAMOXIFEN CITRATE
     Indication: PROGESTERONE RECEPTOR ASSAY POSITIVE
  18. TAMOFEN [Concomitant]
     Active Substance: TAMOXIFEN CITRATE
     Indication: PROGESTERONE RECEPTOR ASSAY POSITIVE
  19. TAMONE [Concomitant]
     Indication: INVASIVE DUCTAL BREAST CARCINOMA
     Dosage: UNK
     Dates: start: 2016
  20. CYTOXAN [Concomitant]
     Active Substance: CYCLOPHOSPHAMIDE
     Indication: HUMAN EPIDERMAL GROWTH FACTOR RECEPTOR NEGATIVE
  21. APO-TAMOX [Concomitant]
     Active Substance: TAMOXIFEN
     Indication: PROGESTERONE RECEPTOR ASSAY POSITIVE
  22. CYTOXAN [Concomitant]
     Active Substance: CYCLOPHOSPHAMIDE
     Indication: INVASIVE DUCTAL BREAST CARCINOMA
     Dosage: UNK
     Dates: start: 20160907
  23. TAMOFEN [Concomitant]
     Active Substance: TAMOXIFEN CITRATE
     Indication: INVASIVE DUCTAL BREAST CARCINOMA
     Dosage: UNK
     Dates: start: 2016
  24. TAXOTERE [Concomitant]
     Active Substance: DOCETAXEL
     Indication: PROGESTERONE RECEPTOR ASSAY POSITIVE
  25. APO-TAMOX [Concomitant]
     Active Substance: TAMOXIFEN
     Indication: INVASIVE DUCTAL BREAST CARCINOMA
     Dosage: UNK
     Dates: start: 2016

REACTIONS (6)
  - Pyrexia [Recovering/Resolving]
  - Crying [Unknown]
  - Rash macular [Unknown]
  - Malaise [Unknown]
  - Alopecia [Not Recovered/Not Resolved]
  - Bone pain [Unknown]

NARRATIVE: CASE EVENT DATE: 2016
